FAERS Safety Report 5679345-3 (Version None)
Quarter: 2008Q1

REPORT INFORMATION
  Report Type: 
  Country: None (occurrence: None)
  Receive Date: 20080325
  Receipt Date: 20080313
  Transmission Date: 20080703
  Serious: Yes (Other)
  Sender: FDA-Public Use
  Company Number: NO-ROCHE-545771

PATIENT
  Age: 25 Year
  Sex: Female
  Weight: 60 kg

DRUGS (1)
  1. ROACCUTAN [Suspect]
     Indication: ACNE CONGLOBATA
     Route: 048
     Dates: start: 20050101, end: 20060101

REACTIONS (1)
  - CALCINOSIS [None]
